FAERS Safety Report 21676424 (Version 1)
Quarter: 2022Q4

REPORT INFORMATION
  Report Type: Report from Study
  Country: FR (occurrence: FR)
  Receive Date: 20221202
  Receipt Date: 20221202
  Transmission Date: 20230112
  Serious: Yes (Death, Life-Threatening, Hospitalization, Other)
  Sender: FDA-Public Use
  Company Number: FR-PFIZER INC-PV202200112763

PATIENT
  Weight: 5 kg

DRUGS (7)
  1. GEMTUZUMAB OZOGAMICIN [Suspect]
     Active Substance: GEMTUZUMAB OZOGAMICIN
     Dosage: 0.5 MG, 1X/DAY (CURRENT COURSE: 1)
     Route: 042
     Dates: start: 20220405, end: 20220405
  2. MITOXANTRONE HYDROCHLORIDE [Suspect]
     Active Substance: MITOXANTRONE HYDROCHLORIDE
     Dosage: 0,4 MG/KG/DOSE, 1X/DAY (CURRENT COURSE: 1)
     Route: 042
     Dates: start: 20220402, end: 20220404
  3. CEFTAZIDIME [Concomitant]
     Active Substance: CEFTAZIDIME
     Indication: Pyrexia
     Dosage: 800 MG, 1X/DAY
     Dates: start: 20220402, end: 20220420
  4. IMIPENEM [Concomitant]
     Active Substance: IMIPENEM
     Indication: Febrile bone marrow aplasia
     Dosage: 200 MG, 1X/DAY
     Dates: start: 20220420, end: 20220503
  5. VANCOMATE [Concomitant]
     Indication: Febrile bone marrow aplasia
     Dosage: 220 MG, 1X/DAY
     Dates: start: 20220418, end: 20220428
  6. CASPOFUNGIN [Concomitant]
     Active Substance: CASPOFUNGIN
     Indication: Febrile bone marrow aplasia
     Dosage: 14 MG, 1X/DAY
     Dates: start: 20220421, end: 20220502
  7. AMIKACIN [Concomitant]
     Active Substance: AMIKACIN
     Indication: Febrile bone marrow aplasia
     Dosage: 75 MG, 1X/DAY
     Dates: start: 20220419, end: 20220421

REACTIONS (6)
  - Hepatobiliary disease [Fatal]
  - Hepatomegaly [Unknown]
  - Aspartate aminotransferase increased [Unknown]
  - Alanine aminotransferase increased [Unknown]
  - Blood bilirubin increased [Unknown]
  - Adenovirus infection [Unknown]

NARRATIVE: CASE EVENT DATE: 20220502
